FAERS Safety Report 12715724 (Version 2)
Quarter: 2016Q4

REPORT INFORMATION
  Report Type: Spontaneous
  Country: US (occurrence: US)
  Receive Date: 20160906
  Receipt Date: 20161014
  Transmission Date: 20170207
  Serious: No
  Sender: FDA-Public Use
  Company Number: US-PFIZER INC-2016411391

PATIENT
  Age: 80 Year
  Sex: Male

DRUGS (1)
  1. DOXYCYCLINE HYCLATE. [Suspect]
     Active Substance: DOXYCYCLINE HYCLATE
     Dosage: 10 MG 3 PILLS

REACTIONS (3)
  - Headache [Unknown]
  - Dizziness [Unknown]
  - Blood glucose increased [Unknown]
